FAERS Safety Report 6759009-5 (Version None)
Quarter: 2010Q2

REPORT INFORMATION
  Report Type: 
  Country: None (occurrence: None)
  Receive Date: 20100607
  Receipt Date: 20100525
  Transmission Date: 20101027
  Serious: Yes (Hospitalization)
  Sender: FDA-Public Use
  Company Number: PHHY2010US34857

PATIENT
  Sex: Male
  Weight: 83 kg

DRUGS (3)
  1. ERL 080A ERL+TAB [Suspect]
     Indication: RENAL TRANSPLANT
     Dosage: 1440 MG/DAY
     Route: 048
     Dates: start: 20100514
  2. TACROLIMUS [Concomitant]
     Indication: IMMUNOSUPPRESSION
     Dosage: 2 MG, BID
     Dates: start: 20100514
  3. PREDNISONE [Concomitant]
     Indication: IMMUNOSUPPRESSION
     Dosage: 10 MG, QD
     Dates: start: 20100515

REACTIONS (10)
  - ASTHENIA [None]
  - BLOOD PRESSURE DECREASED [None]
  - COMPLICATIONS OF TRANSPLANTED KIDNEY [None]
  - CREATINE URINE INCREASED [None]
  - FATIGUE [None]
  - HEADACHE [None]
  - HYDRONEPHROSIS [None]
  - INCORRECT DOSE ADMINISTERED [None]
  - KIDNEY ANASTOMOSIS [None]
  - MALAISE [None]
